FAERS Safety Report 8419315-5 (Version None)
Quarter: 2012Q2

REPORT INFORMATION
  Report Type: 
  Country: None (occurrence: None)
  Receive Date: 20120607
  Receipt Date: 20111219
  Transmission Date: 20120825
  Serious: Yes (Death)
  Sender: FDA-Public Use
  Company Number: US-ROCHE-1075865

PATIENT
  Sex: Male

DRUGS (8)
  1. XELODA [Suspect]
     Indication: PRODUCT USED FOR UNKNOWN INDICATION
  2. GLEEVEC [Suspect]
     Indication: PRODUCT USED FOR UNKNOWN INDICATION
     Route: 048
  3. TARCEVA [Suspect]
     Indication: PRODUCT USED FOR UNKNOWN INDICATION
  4. MAXIDEX [Concomitant]
  5. NEXAVAR [Concomitant]
  6. COUMADIN [Concomitant]
  7. POTASSIUM [Concomitant]
  8. NORVASC [Concomitant]

REACTIONS (1)
  - DISEASE PROGRESSION [None]
